FAERS Safety Report 19836660 (Version 1)
Quarter: 2021Q3

REPORT INFORMATION
  Report Type: Report from Study
  Country: None (occurrence: GB)
  Receive Date: 20210916
  Receipt Date: 20210916
  Transmission Date: 20211014
  Serious: Yes (Hospitalization)
  Sender: FDA-Public Use
  Company Number: GB-ABBVIE-21K-167-4079803-00

PATIENT
  Age: 70 Year
  Sex: Female

DRUGS (3)
  1. DUODOPA [Suspect]
     Active Substance: CARBIDOPA\LEVODOPA
  2. RIVASTIGMINE. [Suspect]
     Active Substance: RIVASTIGMINE
     Indication: PRODUCT USED FOR UNKNOWN INDICATION
     Route: 062
  3. DUODOPA [Suspect]
     Active Substance: CARBIDOPA\LEVODOPA
     Indication: PARKINSON^S DISEASE
     Route: 050
     Dates: start: 20210719, end: 2021

REACTIONS (26)
  - Sleep disorder [Unknown]
  - Somnolence [Unknown]
  - Parkinson^s disease [Unknown]
  - Incoherent [Unknown]
  - Device dislocation [Unknown]
  - Urinary tract infection [Unknown]
  - Bradykinesia [Unknown]
  - Somnolence [Recovered/Resolved]
  - Social avoidant behaviour [Unknown]
  - Mobility decreased [Recovered/Resolved]
  - Facial paralysis [Recovered/Resolved]
  - Hospitalisation [Unknown]
  - Patient elopement [Unknown]
  - Aggression [Unknown]
  - Feeding disorder [Unknown]
  - Disorientation [Unknown]
  - Pain [Unknown]
  - Unevaluable event [Unknown]
  - On and off phenomenon [Unknown]
  - Disorientation [Unknown]
  - Somnolence [Unknown]
  - Hallucination [Unknown]
  - Malaise [Unknown]
  - Confusional state [Recovered/Resolved]
  - Unevaluable event [Unknown]
  - Immobile [Unknown]

NARRATIVE: CASE EVENT DATE: 202109
